FAERS Safety Report 4389388-8 (Version None)
Quarter: 2004Q2

REPORT INFORMATION
  Report Type: 
  Country: None (occurrence: None)
  Receive Date: 20040630
  Receipt Date: 20040617
  Transmission Date: 20050107
  Serious: Yes (Other)
  Sender: FDA-Public Use
  Company Number: JP-JNJFOC-20040606648

PATIENT
  Age: 51 Year
  Sex: Female

DRUGS (3)
  1. ITRACONAZOLE [Suspect]
     Indication: ONYCHOMYCOSIS
     Dosage: 400 MG, 1 IN 1 DAY ORAL
     Route: 048
     Dates: start: 20040410, end: 20040416
  2. DIOVAN [Concomitant]
  3. ASTAT (LANOCONAZOLE) [Concomitant]

REACTIONS (2)
  - ERYTHEMA MULTIFORME [None]
  - TOXIC SKIN ERUPTION [None]
